FAERS Safety Report 12328327 (Version 1)
Quarter: 2016Q2

REPORT INFORMATION
  Report Type: Spontaneous
  Country: GB (occurrence: GB)
  Receive Date: 20160503
  Receipt Date: 20160503
  Transmission Date: 20160815
  Serious: Yes (Other)
  Sender: FDA-Public Use
  Company Number: GB-PFIZER INC-2016235743

PATIENT
  Age: 18 Year
  Sex: Male
  Weight: 61 kg

DRUGS (6)
  1. FESOFOR [Concomitant]
     Active Substance: IRON
     Dosage: 200 MG, UNK
     Route: 048
     Dates: start: 20160405
  2. VANCOMYCIN [Concomitant]
     Active Substance: VANCOMYCIN
     Indication: CYSTITIS INTERSTITIAL
     Dosage: 1 G, UNK
     Route: 042
     Dates: start: 20160405
  3. TAZOCIN [Suspect]
     Active Substance: PIPERACILLIN SODIUM\TAZOBACTAM SODIUM
     Indication: PNEUMONIA
     Dosage: 4.5 G, UNK
     Route: 042
     Dates: start: 20160406, end: 20160406
  4. LOSARTAN. [Concomitant]
     Active Substance: LOSARTAN
     Dosage: 12.5 MG, UNK
     Route: 048
     Dates: start: 20160405
  5. GENTAMICIN. [Concomitant]
     Active Substance: GENTAMICIN
     Indication: CYSTITIS INTERSTITIAL
     Dosage: 60 MG, UNK
     Route: 042
     Dates: start: 20160405
  6. ASPIRIN. [Concomitant]
     Active Substance: ASPIRIN
     Dosage: 150 MG, UNK
     Route: 048
     Dates: start: 20160405

REACTIONS (5)
  - Paraesthesia [Recovered/Resolved]
  - Swelling face [Recovered/Resolved]
  - Peripheral swelling [Recovered/Resolved]
  - Lip swelling [Recovered/Resolved]
  - Oxygen saturation decreased [Recovered/Resolved]

NARRATIVE: CASE EVENT DATE: 20160406
